FAERS Safety Report 12939616 (Version 3)
Quarter: 2016Q4

REPORT INFORMATION
  Report Type: Spontaneous
  Country: US (occurrence: US)
  Receive Date: 20161115
  Receipt Date: 20161123
  Transmission Date: 20170207
  Serious: Yes (Other)
  Sender: FDA-Public Use
  Company Number: PHEH2016US029735

PATIENT
  Sex: Female

DRUGS (1)
  1. GILENYA [Suspect]
     Active Substance: FINGOLIMOD HYDROCHLORIDE
     Indication: RELAPSING-REMITTING MULTIPLE SCLEROSIS
     Dosage: 0.5 MG, QD
     Route: 048
     Dates: start: 20120701

REACTIONS (26)
  - Multiple sclerosis relapse [Recovered/Resolved]
  - Vision blurred [Unknown]
  - Balance disorder [Unknown]
  - Sensitivity to weather change [Unknown]
  - Memory impairment [Unknown]
  - Motor dysfunction [Unknown]
  - Hypoaesthesia [Unknown]
  - Gait disturbance [Unknown]
  - Sensory loss [Unknown]
  - Temperature intolerance [Unknown]
  - Tremor [Unknown]
  - Crying [Unknown]
  - Peripheral coldness [Unknown]
  - Heart rate increased [Unknown]
  - Dysphemia [Unknown]
  - Dyspnoea [Unknown]
  - Cognitive disorder [Unknown]
  - Headache [Unknown]
  - Fatigue [Unknown]
  - Dysarthria [Unknown]
  - Pain [Unknown]
  - Peroneal nerve palsy [Unknown]
  - Vertigo [Unknown]
  - Affect lability [Unknown]
  - Neuralgia [Unknown]
  - Sciatica [Unknown]

NARRATIVE: CASE EVENT DATE: 20161117
